FAERS Safety Report 10993216 (Version 3)
Quarter: 2015Q3

REPORT INFORMATION
  Report Type: Report from Study
  Country: BR (occurrence: BR)
  Receive Date: 20150407
  Receipt Date: 20150911
  Transmission Date: 20151125
  Serious: Yes (Hospitalization)
  Sender: FDA-Public Use
  Company Number: PHHY2015BR041039

PATIENT
  Sex: Male
  Weight: 108 kg

DRUGS (5)
  1. EXELON PATCH [Suspect]
     Active Substance: RIVASTIGMINE
     Indication: MEMORY IMPAIRMENT
  2. EXELON PATCH [Suspect]
     Active Substance: RIVASTIGMINE
     Indication: DEPRESSION
  3. EXELON PATCH [Suspect]
     Active Substance: RIVASTIGMINE
     Indication: NERVOUS SYSTEM DISORDER
  4. EXELON PATCH [Suspect]
     Active Substance: RIVASTIGMINE
     Indication: CRYING
  5. EXELON PATCH [Suspect]
     Active Substance: RIVASTIGMINE
     Indication: DEMENTIA ALZHEIMER^S TYPE
     Dosage: PATCH 5 (CM2) (DAILY IN THE MORNING)
     Route: 062

REACTIONS (5)
  - Product use issue [Unknown]
  - Memory impairment [Not Recovered/Not Resolved]
  - Product adhesion issue [Unknown]
  - Cataract [Unknown]
  - Condition aggravated [Not Recovered/Not Resolved]
